FAERS Safety Report 14863022 (Version 1)
Quarter: 2018Q2

REPORT INFORMATION
  Report Type: Report from Study
  Country: US (occurrence: US)
  Receive Date: 20180508
  Receipt Date: 20180508
  Transmission Date: 20180711
  Serious: Yes (Hospitalization)
  Sender: FDA-Public Use
  Company Number: US-ALKERMES INC.-ALK-2017-002382

PATIENT
  Sex: Male

DRUGS (2)
  1. KEPPRA [Concomitant]
     Active Substance: LEVETIRACETAM
     Indication: SEIZURE
     Dosage: UNK, QD
  2. VIVITROL [Suspect]
     Active Substance: NALTREXONE
     Indication: ALCOHOLISM
     Dosage: 380 MG, UNK
     Route: 030
     Dates: start: 20170412

REACTIONS (6)
  - Urinary incontinence [Recovered/Resolved]
  - Seizure [Recovered/Resolved]
  - Postictal state [Recovered/Resolved]
  - Alcohol poisoning [Recovered/Resolved]
  - Pancreatitis [Recovered/Resolved]
  - Alcohol withdrawal syndrome [Recovered/Resolved]

NARRATIVE: CASE EVENT DATE: 20170608
